FAERS Safety Report 15923892 (Version 2)
Quarter: 2019Q1

REPORT INFORMATION
  Report Type: Spontaneous
  Country: PL (occurrence: PL)
  Receive Date: 20190206
  Receipt Date: 20190308
  Transmission Date: 20190417
  Serious: Yes (Other)
  Sender: FDA-Public Use
  Company Number: PL-ASTRAZENECA-2019SE19712

PATIENT
  Age: 73 Year
  Sex: Female

DRUGS (3)
  1. ZOLEDRONIC ACID [Concomitant]
     Active Substance: ZOLEDRONIC ACID
     Dosage: 4 MG EVERY 3 MONTHS.
     Route: 042
  2. FULVESTRANT. [Suspect]
     Active Substance: FULVESTRANT
     Dosage: 500 MG EVERY 28 DAYS
     Route: 030
     Dates: start: 201701, end: 201705
  3. ZOLEDRONIC ACID [Concomitant]
     Active Substance: ZOLEDRONIC ACID
     Dosage: 4 MG EVERY MONTHS
     Route: 042

REACTIONS (3)
  - Treatment failure [Unknown]
  - Metastases to bone [Unknown]
  - Malignant neoplasm progression [Unknown]
